FAERS Safety Report 6698700-6 (Version None)
Quarter: 2010Q2

REPORT INFORMATION
  Report Type: 
  Country: None (occurrence: None)
  Receive Date: 20100427
  Receipt Date: 20090619
  Transmission Date: 20101027
  Serious: No
  Sender: FDA-Public Use
  Company Number: US-ASTRAZENECA-2009UW16273

PATIENT
  Sex: Female

DRUGS (1)
  1. ZOMIG-ZMT [Suspect]
     Route: 048

REACTIONS (1)
  - DYSGEUSIA [None]
